FAERS Safety Report 26071150 (Version 1)
Quarter: 2025Q4

REPORT INFORMATION
  Report Type: Spontaneous
  Country: EU (occurrence: EU)
  Receive Date: 20251120
  Receipt Date: 20251120
  Transmission Date: 20260119
  Serious: Yes (Other)
  Sender: ASTELLAS
  Company Number: EU-IPSEN Group, Research and Development-2025-27667

PATIENT
  Age: 77 Year
  Sex: Male

DRUGS (9)
  1. ENZALUTAMIDE [Suspect]
     Active Substance: ENZALUTAMIDE
     Indication: Prostate cancer metastatic
     Dosage: UNK, 2 MONTHS 6 DAYS
     Route: 050
     Dates: start: 20250801, end: 20251006
  2. TRIPTORELIN [Suspect]
     Active Substance: TRIPTORELIN
     Indication: Antiandrogen therapy
     Route: 050
     Dates: start: 2017
  3. TALAZOPARIB [Suspect]
     Active Substance: TALAZOPARIB
     Indication: Prostate cancer metastatic
     Dosage: UNK, 2 MONTHS 6 DAYS
     Route: 065
     Dates: start: 20250801, end: 20251006
  4. TAMSULOSIN [Concomitant]
     Active Substance: TAMSULOSIN
     Indication: Product used for unknown indication
     Route: 065
  5. ARTANE [Concomitant]
     Active Substance: TRIHEXYPHENIDYL HYDROCHLORIDE
     Indication: Product used for unknown indication
     Route: 065
  6. PANTOPRAZOLE [Concomitant]
     Active Substance: PANTOPRAZOLE
     Indication: Product used for unknown indication
     Route: 065
  7. ROPINIROLE [Concomitant]
     Active Substance: ROPINIROLE
     Indication: Product used for unknown indication
     Route: 065
  8. FINASTERIDE [Concomitant]
     Active Substance: FINASTERIDE
     Indication: Product used for unknown indication
     Route: 065
  9. ALLOPURINOL [Concomitant]
     Active Substance: ALLOPURINOL
     Indication: Product used for unknown indication
     Route: 065

REACTIONS (3)
  - Erectile dysfunction [Unknown]
  - Anaemia [Unknown]
  - Loss of libido [Unknown]
